FAERS Safety Report 22044849 (Version 1)
Quarter: 2023Q1

REPORT INFORMATION
  Report Type: Spontaneous
  Country: US (occurrence: None)
  Receive Date: 20230227
  Receipt Date: 20230227
  Transmission Date: 20230417
  Serious: Yes (unspecified)
  Sender: FDA-Public Use
  Company Number: None

PATIENT
  Age: 53 Year
  Sex: Female
  Weight: 53.55 kg

DRUGS (1)
  1. EMGALITY [Suspect]
     Active Substance: GALCANEZUMAB-GNLM
     Indication: Migraine
     Dosage: OTHER FREQUENCY : EVERY 28 DAYS;?
     Route: 058
     Dates: start: 20230101

REACTIONS (2)
  - Alopecia [None]
  - Alopecia [None]

NARRATIVE: CASE EVENT DATE: 20230203
